FAERS Safety Report 6256360-2 (Version None)
Quarter: 2009Q3

REPORT INFORMATION
  Report Type: 
  Country: None (occurrence: None)
  Receive Date: 20090706
  Receipt Date: 20090626
  Transmission Date: 20100115
  Serious: Yes (Hospitalization)
  Sender: FDA-Public Use
  Company Number: DE-ROCHE-641460

PATIENT
  Age: 85 Year
  Sex: Female

DRUGS (15)
  1. NAPROXEN [Suspect]
     Indication: DRUG USE FOR UNKNOWN INDICATION
     Route: 065
  2. NAPROSYN [Suspect]
     Indication: DRUG USE FOR UNKNOWN INDICATION
     Route: 065
  3. NIFEDIPINE [Suspect]
     Indication: DRUG USE FOR UNKNOWN INDICATION
     Route: 065
  4. ASPIRIN [Suspect]
     Indication: DRUG USE FOR UNKNOWN INDICATION
     Route: 065
  5. INDOMETHACIN [Suspect]
     Indication: DRUG USE FOR UNKNOWN INDICATION
     Route: 065
  6. ELAVIL [Suspect]
     Indication: DRUG USE FOR UNKNOWN INDICATION
     Dosage: TAPERED AND WITHDRAWN
     Route: 065
  7. BUSPAR [Suspect]
     Indication: DRUG USE FOR UNKNOWN INDICATION
     Route: 065
  8. REMERON [Suspect]
     Indication: DRUG USE FOR UNKNOWN INDICATION
     Route: 065
  9. LIBRAX [Suspect]
     Indication: DRUG USE FOR UNKNOWN INDICATION
     Dosage: TAPERED AND WITHDRAWN
     Route: 065
  10. PERPHENAZINE [Suspect]
     Indication: DRUG USE FOR UNKNOWN INDICATION
     Dosage: TAPERED AND WITHDRAWN
     Route: 065
  11. PRILOSEC [Suspect]
     Indication: DRUG USE FOR UNKNOWN INDICATION
     Route: 065
  12. CARAFATE [Suspect]
     Indication: DRUG USE FOR UNKNOWN INDICATION
     Route: 065
  13. DETROL [Suspect]
     Indication: DRUG USE FOR UNKNOWN INDICATION
     Route: 065
  14. PROCARDIA [Suspect]
     Indication: DRUG USE FOR UNKNOWN INDICATION
     Dosage: DRUG NAME: PROCARDIA XL
     Route: 065
  15. ZYVOX [Suspect]
     Indication: DRUG USE FOR UNKNOWN INDICATION
     Route: 065

REACTIONS (3)
  - MENTAL STATUS CHANGES [None]
  - RENAL FAILURE ACUTE [None]
  - URINARY TRACT INFECTION [None]
